FAERS Safety Report 12838499 (Version 1)
Quarter: 2016Q4

REPORT INFORMATION
  Report Type: Spontaneous
  Country: US (occurrence: US)
  Receive Date: 20161012
  Receipt Date: 20161012
  Transmission Date: 20170207
  Serious: No
  Sender: FDA-Public Use
  Company Number: US-VELOXIS PHARMACEUTICALS-1058250

PATIENT
  Age: 76 Year
  Sex: Female
  Weight: 64.55 kg

DRUGS (9)
  1. MYCOPHENOLATE MOFETIL. [Concomitant]
     Active Substance: MYCOPHENOLATE MOFETIL
  2. ENVARSUS XR [Suspect]
     Active Substance: TACROLIMUS
     Dates: start: 20160807
  3. CLONIDINE. [Concomitant]
     Active Substance: CLONIDINE
  4. ENVARSUS XR [Suspect]
     Active Substance: TACROLIMUS
     Dates: start: 20160729, end: 20160806
  5. ENVARSUS XR [Suspect]
     Active Substance: TACROLIMUS
     Indication: RENAL TRANSPLANT
     Dates: start: 20160723, end: 20160728
  6. ARMOUR THYROID [Concomitant]
     Active Substance: THYROID, PORCINE
  7. SPIRONOLACTONE. [Concomitant]
     Active Substance: SPIRONOLACTONE
  8. ATORVASTATIN [Concomitant]
     Active Substance: ATORVASTATIN
  9. CARVEDILOL. [Concomitant]
     Active Substance: CARVEDILOL

REACTIONS (2)
  - Inappropriate schedule of drug administration [Unknown]
  - Immunosuppressant drug level increased [Unknown]
